FAERS Safety Report 9425920 (Version 3)
Quarter: 2014Q1

REPORT INFORMATION
  Report Type: Spontaneous
  Country: US (occurrence: US)
  Receive Date: 20130729
  Receipt Date: 20140210
  Transmission Date: 20141002
  Serious: Yes (Hospitalization)
  Sender: FDA-Public Use
  Company Number: US-B.I. PHARMACEUTICALS,INC./RIDGEFIELD-2013-BI-22208BP

PATIENT
  Sex: Female
  Weight: 83.91 kg

DRUGS (16)
  1. PRADAXA [Suspect]
     Indication: ATRIAL FIBRILLATION
     Dosage: 300 MG
     Route: 048
     Dates: end: 20120716
  2. CALCIUM WITH VITAMIN D [Concomitant]
  3. MEGARED [Concomitant]
  4. VITAMIN D3 [Concomitant]
  5. MAGNESIUM WITH ZINC [Concomitant]
  6. LECITHIN [Concomitant]
  7. COQ10 [Concomitant]
  8. ASPIRIN [Concomitant]
  9. AMLODIPINE [Concomitant]
     Dates: start: 2000
  10. FAMOTIDINE [Concomitant]
     Dates: start: 2011
  11. LEVOTHYROXINE [Concomitant]
     Dates: start: 1980
  12. LISINOPRIL/HCTZ [Concomitant]
     Dates: start: 1990
  13. METFORMIN [Concomitant]
     Dates: start: 2005
  14. METOPROLOL [Concomitant]
     Dates: start: 2006
  15. PRAVASTATIN [Concomitant]
     Dates: start: 2008
  16. CLONIDINE [Concomitant]
     Dates: start: 1980

REACTIONS (7)
  - Gastrointestinal haemorrhage [Unknown]
  - Urinary tract infection [Unknown]
  - Renal failure acute [Unknown]
  - Leukocytosis [Unknown]
  - Drug intolerance [Unknown]
  - Hyperglycaemia [Unknown]
  - Blood alkaline phosphatase increased [Unknown]
